FAERS Safety Report 6593153-0 (Version None)
Quarter: 2010Q1

REPORT INFORMATION
  Report Type: 
  Country: None (occurrence: None)
  Receive Date: 20100222
  Receipt Date: 20100209
  Transmission Date: 20100710
  Serious: Yes (Hospitalization, Other)
  Sender: FDA-Public Use
  Company Number: PHHY2009JP32652

PATIENT
  Age: 71 Year
  Sex: Female

DRUGS (2)
  1. LOCHOL [Suspect]
     Dosage: UNK
     Route: 048
  2. ANTIHYPERTENSIVES [Concomitant]

REACTIONS (3)
  - MUSCULAR WEAKNESS [None]
  - RHABDOMYOLYSIS [None]
  - UROSEPSIS [None]
